FAERS Safety Report 21997696 (Version 1)
Quarter: 2023Q1

REPORT INFORMATION
  Report Type: Spontaneous
  Country: DE (occurrence: DE)
  Receive Date: 20230216
  Receipt Date: 20230216
  Transmission Date: 20230418
  Serious: Yes (Other)
  Sender: FDA-Public Use
  Company Number: None

PATIENT
  Age: 49 Year
  Sex: Male
  Weight: 100 kg

DRUGS (9)
  1. CLINDAMYCIN [Suspect]
     Active Substance: CLINDAMYCIN
     Indication: Product used for unknown indication
     Dosage: STRENGTH : 600 MG, THERAPY END DATE : NASK
     Dates: start: 202212
  2. RAMIPRIL [Concomitant]
     Active Substance: RAMIPRIL
     Indication: Product used for unknown indication
     Dosage: STRENGTH : 5 MG, DURATION : 342 DAYS, PZN: 1983648
     Dates: start: 20220101, end: 20221209
  3. METFORMIN HYDROCHLORIDE [Concomitant]
     Active Substance: METFORMIN HYDROCHLORIDE
     Indication: Product used for unknown indication
     Dosage: DURATION : 342 DAYS, PZN: 2950970
     Dates: start: 20220101, end: 20221209
  4. METAMIZOLE SODIUM [Concomitant]
     Active Substance: METAMIZOLE SODIUM
     Indication: Product used for unknown indication
     Dosage: STRENGTH : 500 MG, DURATION : 9 DAYS
     Dates: start: 20221111, end: 20221120
  5. ASPIRIN [Concomitant]
     Active Substance: ASPIRIN
     Indication: Product used for unknown indication
     Dosage: ASS AL 100 TAH, DURATION : 342 DAYS, PZN: 3024202
     Dates: start: 20220101, end: 20221209
  6. PREGABALIN [Concomitant]
     Active Substance: PREGABALIN
     Indication: Product used for unknown indication
     Dosage: STRENGTH : 25 MG, DURATION : 342 DAYS
     Dates: start: 20220101, end: 20221209
  7. DAPAGLIFLOZIN [Concomitant]
     Active Substance: DAPAGLIFLOZIN
     Indication: Product used for unknown indication
     Dosage: STRENGTH : 10 MG, DURATION : 342 DAYS
     Dates: start: 20220101, end: 20221209
  8. PANTOPRAZOLE [Concomitant]
     Active Substance: PANTOPRAZOLE
     Indication: Product used for unknown indication
     Dosage: PANTOPRAZOLE HEUMANN 20MG , DURATION : 254 DAYS, PZN: 5860233
     Dates: start: 20220101, end: 20220912
  9. DULOXETINE HYDROCHLORIDE [Concomitant]
     Active Substance: DULOXETINE HYDROCHLORIDE
     Indication: Product used for unknown indication
     Dosage: 90 MILLIGRAM DAILY; 1-0-0, STRENGTH : 90 MG , UNIT DOSE : 90 MG, DURATION :1 DAY, PZN: 13059070
     Dates: start: 20221208, end: 20221209

REACTIONS (5)
  - Hypertensive crisis [Recovered/Resolved]
  - Heart rate increased [Recovered/Resolved]
  - Restlessness [Recovered/Resolved]
  - Panic attack [Recovered/Resolved]
  - Flushing [Recovered/Resolved]

NARRATIVE: CASE EVENT DATE: 20221208
